FAERS Safety Report 14967371 (Version 1)
Quarter: 2018Q2

REPORT INFORMATION
  Report Type: Spontaneous
  Country: US (occurrence: US)
  Receive Date: 20180511
  Receipt Date: 20180511
  Transmission Date: 20180711
  Serious: Yes (Hospitalization)
  Sender: FDA-Public Use
  Company Number: None

PATIENT
  Sex: Female

DRUGS (23)
  1. LOPERAMIDE [Concomitant]
     Active Substance: LOPERAMIDE
  2. LOSARTAN POT [Concomitant]
     Active Substance: LOSARTAN POTASSIUM
  3. EPHEDRA [Concomitant]
     Active Substance: EPHEDRA
  4. VITAMIN D3 [Concomitant]
     Active Substance: CHOLECALCIFEROL
  5. ISOSORB MONO [Concomitant]
     Active Substance: ISOSORBIDE MONONITRATE
  6. VOTRIENT [Suspect]
     Active Substance: PAZOPANIB HYDROCHLORIDE
     Indication: BREAST CANCER FEMALE
     Route: 048
     Dates: start: 20111111
  7. TUMS [Concomitant]
     Active Substance: CALCIUM CARBONATE
  8. HUMALOG [Concomitant]
     Active Substance: INSULIN LISPRO
  9. HYDROCO/APAP [Concomitant]
     Active Substance: ACETAMINOPHEN\HYDROCODONE
  10. MORPHINE [Concomitant]
     Active Substance: MORPHINE
  11. CYMBALTA [Concomitant]
     Active Substance: DULOXETINE HYDROCHLORIDE
  12. AMLODIPINE [Concomitant]
     Active Substance: AMLODIPINE BESYLATE
  13. TYLENOL [Concomitant]
     Active Substance: ACETAMINOPHEN
  14. GABAPENTIN. [Concomitant]
     Active Substance: GABAPENTIN
  15. LANTUS [Concomitant]
     Active Substance: INSULIN GLARGINE
  16. LOMOTIL [Concomitant]
     Active Substance: ATROPINE SULFATE\DIPHENOXYLATE HYDROCHLORIDE
  17. OXYCODONE [Concomitant]
     Active Substance: OXYCODONE
  18. PHENERGAN [Concomitant]
     Active Substance: PROMETHAZINE HYDROCHLORIDE
  19. FUROSEMIDE. [Concomitant]
     Active Substance: FUROSEMIDE
  20. AUGMENTIN [Concomitant]
     Active Substance: AMOXICILLIN\CLAVULANATE POTASSIUM
  21. CUBICIN [Concomitant]
     Active Substance: DAPTOMYCIN
  22. RISPERDAL [Concomitant]
     Active Substance: RISPERIDONE
  23. FLUOXETINE [Concomitant]
     Active Substance: FLUOXETINE HYDROCHLORIDE

REACTIONS (9)
  - Dry skin [None]
  - Lacrimation increased [None]
  - Vision blurred [None]
  - Diarrhoea [None]
  - Nausea [None]
  - Rash [None]
  - Drug dose omission [None]
  - Contusion [None]
  - Impaired healing [None]
